FAERS Safety Report 17133455 (Version 1)
Quarter: 2019Q4

REPORT INFORMATION
  Report Type: Spontaneous
  Country: US (occurrence: US)
  Receive Date: 20191118
  Receipt Date: 20191118
  Transmission Date: 20200122
  Serious: No
  Sender: FDA-Public Use
  Company Number: None

PATIENT
  Age: 62 Year
  Sex: Female

DRUGS (1)
  1. TEMOZOLOMIDE CAP 100MG 3X5 [Suspect]
     Active Substance: TEMOZOLOMIDE
     Route: 048
     Dates: start: 20190923

REACTIONS (1)
  - Product packaging quantity issue [None]

NARRATIVE: CASE EVENT DATE: 20191118
